FAERS Safety Report 10027434 (Version 1)
Quarter: 2014Q1

REPORT INFORMATION
  Report Type: Spontaneous
  Country: US (occurrence: US)
  Receive Date: 20140321
  Receipt Date: 20140321
  Transmission Date: 20141002
  Serious: No
  Sender: FDA-Public Use
  Company Number: US-PFIZER INC-2014079524

PATIENT
  Sex: Female

DRUGS (1)
  1. NEURONTIN [Suspect]
     Indication: EPILEPSY
     Dosage: 1200 MG (TAKING THREE DIVIDED DOSES AS 300MG, 300MG AND 600MG), IN A DAY

REACTIONS (1)
  - Migraine [Unknown]
